FAERS Safety Report 5943866-6 (Version None)
Quarter: 2008Q4

REPORT INFORMATION
  Report Type: 
  Country: None (occurrence: None)
  Receive Date: 20081106
  Receipt Date: 20081103
  Transmission Date: 20090506
  Serious: Yes (Hospitalization)
  Sender: FDA-Public Use
  Company Number: US-AVENTIS-200816525US

PATIENT
  Sex: Male
  Weight: 84.1 kg

DRUGS (3)
  1. LANTUS [Suspect]
     Route: 058
     Dates: start: 20080301
  2. LANTUS [Suspect]
     Route: 058
     Dates: start: 20051008
  3. OPTICLIK (INSULIN INJECTION PEN) [Suspect]
     Dates: start: 20080701

REACTIONS (1)
  - MYOCARDIAL INFARCTION [None]
